FAERS Safety Report 15054110 (Version 1)
Quarter: 2018Q2

REPORT INFORMATION
  Report Type: Other
  Country: TR (occurrence: TR)
  Receive Date: 20180622
  Receipt Date: 20180622
  Transmission Date: 20180711
  Serious: Yes (Other)
  Sender: FDA-Public Use
  Company Number: TR-EXELTIS USA INC.-2049859

PATIENT
  Age: 36 Year
  Sex: Female

DRUGS (1)
  1. NUVESSA [Suspect]
     Active Substance: METRONIDAZOLE

REACTIONS (10)
  - Neurotoxicity [Unknown]
  - Condition aggravated [None]
  - Nystagmus [None]
  - Nausea [None]
  - Vision blurred [None]
  - Ataxia [None]
  - Myalgia [None]
  - Nervous system disorder [None]
  - Gait disturbance [None]
  - Vomiting [None]
